FAERS Safety Report 10180063 (Version 1)
Quarter: 2014Q2

REPORT INFORMATION
  Report Type: Spontaneous
  Country: US (occurrence: US)
  Receive Date: 20140519
  Receipt Date: 20140519
  Transmission Date: 20141212
  Serious: No
  Sender: FDA-Public Use
  Company Number: US-AMGEN INC.-USASP2013069405

PATIENT
  Sex: Female

DRUGS (2)
  1. PROLIA [Suspect]
     Indication: OSTEOPOROSIS POSTMENOPAUSAL
     Dosage: UNK
     Route: 065
     Dates: start: 20130910
  2. DARVOCET                           /00220901/ [Concomitant]
     Indication: RHEUMATOID ARTHRITIS

REACTIONS (5)
  - Discomfort [Unknown]
  - Joint swelling [Unknown]
  - Peripheral swelling [Unknown]
  - Myalgia [Unknown]
  - Bone pain [Unknown]
